FAERS Safety Report 5746893-7 (Version None)
Quarter: 2008Q2

REPORT INFORMATION
  Report Type: 
  Country: None (occurrence: None)
  Receive Date: 20080522
  Receipt Date: 20080512
  Transmission Date: 20081010
  Serious: Yes (Hospitalization)
  Sender: FDA-Public Use
  Company Number: AU-SANOFI-SYNTHELABO-F01200800807

PATIENT
  Age: 66 Year
  Sex: Male
  Weight: 83 kg

DRUGS (8)
  1. CANGRELOR VS PLACEBO (CODE NOT BROKEN) [Suspect]
     Indication: PERCUTANEOUS CORONARY INTERVENTION
     Dosage: 6.2 ML
     Route: 040
     Dates: start: 20080430, end: 20080430
  2. CANGRELOR VS PLACEBO (CODE NOT BROKEN) [Suspect]
     Dosage: 98.4 ML
     Route: 042
     Dates: start: 20080430, end: 20080430
  3. CLOPIDOGREL [Concomitant]
     Dosage: 75 MG
     Route: 065
     Dates: start: 20080501
  4. ASPIRIN [Concomitant]
     Dosage: 100 MG
     Route: 065
     Dates: start: 20080429
  5. VERAPAMIL [Concomitant]
     Dosage: 80 MG
     Route: 065
     Dates: start: 20080429, end: 20080503
  6. ROSUVASTATIN [Concomitant]
     Dosage: 10 MG
     Route: 065
     Dates: start: 20080429
  7. HEPARIN [Concomitant]
     Dosage: UNK
     Route: 065
  8. CLOPIDOGREL [Suspect]
     Indication: PERCUTANEOUS CORONARY INTERVENTION
     Dosage: 4 CAPSULES PRE-PROCEDURE AND 4 CAPSULES POST-PROCEDURE
     Route: 048
     Dates: start: 20080430, end: 20080430

REACTIONS (1)
  - PULMONARY EMBOLISM [None]
